FAERS Safety Report 23306504 (Version 1)
Quarter: 2023Q4

REPORT INFORMATION
  Report Type: Spontaneous
  Country: IL (occurrence: IL)
  Receive Date: 20231218
  Receipt Date: 20231218
  Transmission Date: 20240110
  Serious: Yes (Other)
  Sender: FDA-Public Use
  Company Number: IL-NOVITIUMPHARMA-2023ILNVP02191

PATIENT
  Age: 66 Year
  Sex: Male

DRUGS (1)
  1. NAPROXEN [Suspect]
     Active Substance: NAPROXEN
     Indication: Peripheral swelling

REACTIONS (2)
  - Purpura fulminans [Unknown]
  - Hypersensitivity vasculitis [Unknown]
